FAERS Safety Report 11290063 (Version 1)
Quarter: 2015Q3

REPORT INFORMATION
  Report Type: Report from Study
  Country: NL (occurrence: NL)
  Receive Date: 20150721
  Receipt Date: 20150721
  Transmission Date: 20151125
  Serious: Yes (Hospitalization)
  Sender: FDA-Public Use
  Company Number: NL-ABBVIE-15P-114-1426182-00

PATIENT
  Sex: Male
  Weight: 61 kg

DRUGS (1)
  1. LUCRIN [Suspect]
     Active Substance: LEUPROLIDE ACETATE
     Indication: PROSTATE CANCER
     Route: 058
     Dates: start: 20150416

REACTIONS (2)
  - Penile swelling [Not Recovered/Not Resolved]
  - Scrotal swelling [Not Recovered/Not Resolved]

NARRATIVE: CASE EVENT DATE: 2015
